FAERS Safety Report 12201826 (Version 2)
Quarter: 2016Q2

REPORT INFORMATION
  Report Type: Spontaneous
  Country: US (occurrence: US)
  Receive Date: 20160322
  Receipt Date: 20160422
  Transmission Date: 20160815
  Serious: Yes (Hospitalization, Other)
  Sender: FDA-Public Use
  Company Number: US-009507513-1603USA007508

PATIENT
  Age: 83 Year
  Sex: Female

DRUGS (4)
  1. OLANZAPINE. [Concomitant]
     Active Substance: OLANZAPINE
     Dosage: 5 MG, EVERY EVENING
  2. REMERON SOLTAB [Suspect]
     Active Substance: MIRTAZAPINE
     Indication: SCHIZOPHRENIA
  3. LEVOTHYROXINE SODIUM. [Concomitant]
     Active Substance: LEVOTHYROXINE SODIUM
  4. REMERON SOLTAB [Suspect]
     Active Substance: MIRTAZAPINE
     Indication: DEPRESSION
     Dosage: 15 MG, DAILY AT BEDTIME
     Route: 048

REACTIONS (7)
  - Breast cancer [Unknown]
  - Obstruction gastric [Not Recovered/Not Resolved]
  - Duodenal obstruction [Not Recovered/Not Resolved]
  - Coronary artery disease [Unknown]
  - Dyslipidaemia [Unknown]
  - Hypertension [Unknown]
  - Urine abnormality [Unknown]

NARRATIVE: CASE EVENT DATE: 20160307
